FAERS Safety Report 11064560 (Version 1)
Quarter: 2015Q2

REPORT INFORMATION
  Report Type: Spontaneous
  Country: US (occurrence: US)
  Receive Date: 20150424
  Receipt Date: 20150424
  Transmission Date: 20150821
  Serious: No
  Sender: FDA-Public Use
  Company Number: US-B.I. PHARMACEUTICALS,INC./RIDGEFIELD-2015-BI-19927BP

PATIENT
  Age: 54 Year
  Sex: Female

DRUGS (1)
  1. JARDIANCE [Suspect]
     Active Substance: EMPAGLIFLOZIN
     Indication: PRODUCT USED FOR UNKNOWN INDICATION
     Route: 048
     Dates: start: 20150402

REACTIONS (4)
  - Cough [Unknown]
  - Pollakiuria [Unknown]
  - Pre-existing condition improved [Unknown]
  - Genital infection fungal [Unknown]

NARRATIVE: CASE EVENT DATE: 201504
